FAERS Safety Report 5965011 (Version 2)
Quarter: 2020Q3

REPORT INFORMATION
  Report Type: Report from Study
  Country: US (occurrence: US)
  Receive Date: 20030207
  Receipt Date: 20060120
  Transmission Date: 20201104
  Serious: Yes (Hospitalization)
  Sender: FDA-Public Use
  Company Number: NSADSS2003005076

PATIENT
  Age: 85 Year
  Sex: Female
  Weight: 46 kg

DRUGS (19)
  1. MULTIVITAMINS [Concomitant]
     Active Substance: VITAMINS
     Route: 048
  2. ACCUPRIL [Concomitant]
     Active Substance: QUINAPRIL HYDROCHLORIDE
     Indication: HYPERTENSION
     Route: 048
  3. MULTIVITAMINS [Concomitant]
     Active Substance: VITAMINS
     Route: 048
  4. PRAVACHOL [Concomitant]
     Active Substance: PRAVASTATIN SODIUM
     Route: 048
  5. DICLOFENAC [Concomitant]
     Active Substance: DICLOFENAC
     Route: 048
  6. MULTIVITAMINS [Concomitant]
     Active Substance: VITAMINS
     Route: 048
  7. VITAMIN B12 [Concomitant]
     Active Substance: CYANOCOBALAMIN
     Route: 048
  8. NORVASC [Concomitant]
     Active Substance: AMLODIPINE BESYLATE
     Indication: HYPERTENSION
     Route: 048
  9. RISPERDAL [Suspect]
     Active Substance: RISPERIDONE
     Dates: start: 20030109, end: 20030124
  10. DETROL [Concomitant]
     Active Substance: TOLTERODINE TARTRATE
     Indication: URINARY INCONTINENCE
     Route: 048
  11. MULTIVITAMINS [Concomitant]
     Active Substance: VITAMINS
     Route: 048
  12. MULTIVITAMINS [Concomitant]
     Active Substance: VITAMINS
     Route: 048
  13. MEGACE [Concomitant]
     Active Substance: MEGESTROL ACETATE
     Route: 048
  14. AMBIEN [Concomitant]
     Active Substance: ZOLPIDEM TARTRATE
     Route: 048
  15. MULTIVITAMINS [Concomitant]
     Active Substance: VITAMINS
     Indication: PROPHYLAXIS
     Route: 048
  16. RISPERIDONE. [Suspect]
     Active Substance: RISPERIDONE
     Route: 048
  17. MULTIVITAMINS [Concomitant]
     Active Substance: VITAMINS
     Route: 048
  18. MULTIVITAMINS [Concomitant]
     Active Substance: VITAMINS
     Route: 048
  19. RISPERIDONE. [Suspect]
     Active Substance: RISPERIDONE
     Route: 048

REACTIONS (2)
  - Mental status changes [None]
  - Atrial fibrillation [Recovered/Resolved]

NARRATIVE: CASE EVENT DATE: 20030124
